FAERS Safety Report 16845710 (Version 3)
Quarter: 2019Q4

REPORT INFORMATION
  Report Type: Report from Study
  Country: HU (occurrence: HU)
  Receive Date: 20190924
  Receipt Date: 20191021
  Transmission Date: 20200122
  Serious: Yes (Death, Other)
  Sender: FDA-Public Use
  Company Number: PHHY2019HU203589

PATIENT
  Age: 66 Year
  Sex: Female
  Weight: 80 kg

DRUGS (4)
  1. CLEXANE [Concomitant]
     Active Substance: ENOXAPARIN SODIUM
     Indication: THROMBOSIS PROPHYLAXIS
     Dosage: 0.6 ML, QD
     Route: 065
     Dates: start: 20190529
  2. SANDOSTATIN LAR DEPOT [Suspect]
     Active Substance: OCTREOTIDE ACETATE
     Indication: PRODUCT USED FOR UNKNOWN INDICATION
     Dosage: UNK
     Route: 065
     Dates: end: 20190226
  3. VEROSPIRON [Concomitant]
     Active Substance: SPIRONOLACTONE
     Indication: DIURETIC THERAPY
     Dosage: 2X1 DAILY
     Route: 065
     Dates: start: 20190529
  4. CITALOPRAM [Suspect]
     Active Substance: CITALOPRAM HYDROBROMIDE
     Indication: DEPRESSION
     Dosage: 20 MG, QD
     Route: 065
     Dates: start: 20190306

REACTIONS (10)
  - Hypophagia [Unknown]
  - Cardiac failure [Fatal]
  - Fluid intake reduced [Unknown]
  - Myopathy [Unknown]
  - Depression [Unknown]
  - Renal failure [Fatal]
  - Hepatotoxicity [Unknown]
  - Oedema peripheral [Unknown]
  - Hepatic failure [Fatal]
  - Neoplasm progression [Unknown]
